FAERS Safety Report 6224669-4 (Version None)
Quarter: 2009Q2

REPORT INFORMATION
  Report Type: 
  Country: None (occurrence: None)
  Receive Date: 20090612
  Receipt Date: 20090325
  Transmission Date: 20091009
  Serious: No
  Sender: FDA-Public Use
  Company Number: US-ABBOTT-09P-163-0564694-00

PATIENT
  Sex: Female

DRUGS (13)
  1. HUMIRA [Suspect]
     Indication: RHEUMATOID ARTHRITIS
     Route: 058
     Dates: start: 20050101
  2. MIRAPEX [Concomitant]
     Indication: MUSCLE SPASMS
     Route: 048
  3. MORPHINE SULFATE [Concomitant]
     Indication: PAIN
     Route: 048
  4. CAPTOPRIL [Concomitant]
     Indication: HYPERTENSION
     Route: 048
  5. SIMVASTATIN [Concomitant]
     Indication: BLOOD CHOLESTEROL INCREASED
  6. CHLORZOXAZONE [Concomitant]
     Indication: MUSCLE SPASMS
  7. HYDROXYZINE HCL [Concomitant]
     Indication: HYPERSENSITIVITY
  8. GABAPENTIN [Concomitant]
     Indication: NEURALGIA
     Route: 048
  9. DIAZEPAM [Concomitant]
     Indication: ANXIETY
     Route: 048
  10. HYDROCODONE BITARTRATE [Concomitant]
     Indication: PAIN
  11. NABUMETONE [Concomitant]
     Indication: INFLAMMATION
  12. GEMFIBROZIL [Concomitant]
     Indication: BLOOD CHOLESTEROL INCREASED
  13. CALTRATE [Concomitant]
     Indication: MEDICAL DIET

REACTIONS (1)
  - INCORRECT DOSE ADMINISTERED [None]
